FAERS Safety Report 5254091-9 (Version None)
Quarter: 2007Q1

REPORT INFORMATION
  Report Type: 
  Country: None (occurrence: None)
  Receive Date: 20070302
  Receipt Date: 20070222
  Transmission Date: 20070707
  Serious: Yes (Disabling)
  Sender: FDA-Public Use
  Company Number: 2007SE01051

PATIENT
  Age: 17527 Day
  Sex: Female

DRUGS (6)
  1. SEROQUEL [Suspect]
     Indication: ANXIETY
     Route: 048
     Dates: start: 20070206, end: 20070206
  2. SEROQUEL [Suspect]
     Indication: SLEEP DISORDER
     Route: 048
     Dates: start: 20070206, end: 20070206
  3. SEROQUEL [Suspect]
     Route: 048
     Dates: start: 20070207, end: 20070207
  4. SEROQUEL [Suspect]
     Route: 048
     Dates: start: 20070207, end: 20070207
  5. SERONIL [Concomitant]
     Indication: PANIC DISORDER
     Route: 048
     Dates: start: 20061101
  6. SERONIL [Concomitant]
     Indication: DEPRESSION
     Route: 048
     Dates: start: 20061101

REACTIONS (3)
  - JOINT STIFFNESS [None]
  - MUSCULOSKELETAL STIFFNESS [None]
  - TACHYCARDIA [None]
